FAERS Safety Report 25727822 (Version 1)
Quarter: 2025Q3

REPORT INFORMATION
  Report Type: Spontaneous
  Country: US (occurrence: None)
  Receive Date: 20250826
  Receipt Date: 20250826
  Transmission Date: 20251021
  Serious: Yes (Hospitalization)
  Sender: FDA-CTU
  Company Number: None

PATIENT
  Sex: Male

DRUGS (2)
  1. ALLOPURINOL [Suspect]
     Active Substance: ALLOPURINOL
  2. SIMVASTATIN [Suspect]
     Active Substance: SIMVASTATIN

REACTIONS (3)
  - Plasma cell myeloma [None]
  - Confusional state [None]
  - Wrong product administered [None]

NARRATIVE: CASE EVENT DATE: 20240119
